FAERS Safety Report 4668124-1 (Version None)
Quarter: 2005Q2

REPORT INFORMATION
  Report Type: 
  Country: None (occurrence: None)
  Receive Date: 20050521
  Receipt Date: 20050112
  Transmission Date: 20051028
  Serious: Yes (Other)
  Sender: FDA-Public Use
  Company Number: PHEH2005US00835

PATIENT
  Age: 55 Year

DRUGS (2)
  1. DECADRON                                /CAN/ [Concomitant]
  2. ZOMETA [Suspect]
     Indication: MULTIPLE MYELOMA
     Dosage: 4 MG EVERY MONTH

REACTIONS (2)
  - JAW DISORDER [None]
  - OSTEONECROSIS [None]
